FAERS Safety Report 9154987 (Version 1)
Quarter: 2013Q1

REPORT INFORMATION
  Report Type: Spontaneous
  Country: US (occurrence: None)
  Receive Date: 20130222
  Receipt Date: 20130222
  Transmission Date: 20140127
  Serious: Yes (Other)
  Sender: FDA-Public Use
  Company Number: ACO_23960_2010

PATIENT
  Age: 63 Year
  Sex: Female

DRUGS (7)
  1. AMPYRA (DALFAMPRIDINE) TABLET, 10MG [Suspect]
     Indication: PRODUCT USED FOR UNKNOWN INDICATION
     Dosage: EVERY 12 HOURS, ORAL
     Route: 048
     Dates: start: 20100616, end: 20100901
  2. OXYBUTYNIN (OXYBUTYNIN) [Concomitant]
  3. FOSAMAX (ALENDRONATE SODIUM) [Concomitant]
  4. VITAMIN D (VITAMIN D NOS) [Concomitant]
  5. CELLCEPT (MYCOPHENOLATE MOFETIL) TABLET [Concomitant]
  6. DITROPAN (OXYBUTYNIN HYDROCHLORIDE) [Concomitant]
  7. UNSPECIFIED OTHER DRUGS FOR MS (MULTIPLE SCLEROSIS) [Concomitant]

REACTIONS (3)
  - Convulsion [None]
  - Inappropriate schedule of drug administration [None]
  - Fall [None]
